FAERS Safety Report 8849163 (Version 1)
Quarter: 2012Q4

REPORT INFORMATION
  Report Type: 
  Country: GB (occurrence: GB)
  Receive Date: 20121019
  Receipt Date: 20121019
  Transmission Date: 20130627
  Serious: Yes (Other)
  Sender: FDA-Public Use
  Company Number: PHHY2012GB076843

PATIENT
  Age: 22 Year
  Sex: Male

DRUGS (7)
  1. CLOZAPINE [Suspect]
     Indication: SCHIZOPHRENIA
     Dosage: UNK
  2. CLOZAPINE [Suspect]
     Dosage: 400 mg, BID
  3. CALCIUM [Concomitant]
  4. VITAMINS NOS [Concomitant]
  5. BECLOMETASONE [Concomitant]
     Indication: ASTHMA
     Dosage: 200 ug, BID
  6. SALBUTAMOL [Concomitant]
     Indication: ASTHMA
     Dosage: PRN
  7. ARIPIPRAZOLE [Concomitant]

REACTIONS (3)
  - Neutropenia [Unknown]
  - Neutrophil count increased [Unknown]
  - Agitation [Unknown]
